FAERS Safety Report 8836939 (Version 1)
Quarter: 2012Q4

REPORT INFORMATION
  Report Type: Spontaneous
  Country: US (occurrence: None)
  Receive Date: 20121010
  Receipt Date: 20121010
  Transmission Date: 20130627
  Serious: Yes (Other)
  Sender: FDA-Public Use
  Company Number: DAV-AE-MTX-12-72

PATIENT
  Age: 67 Year
  Sex: Male
  Weight: 82 kg

DRUGS (9)
  1. METHOTREXATE [Suspect]
     Indication: RHEUMATOID ARTHRITIS
     Dates: start: 20090519, end: 20110512
  2. HUMIRA [Suspect]
     Route: 058
     Dates: start: 20050620, end: 20090518
  3. HUMIRA [Suspect]
     Route: 058
     Dates: start: 20090618
  4. CARVEDILOL [Concomitant]
  5. WARFARIN SODIUM [Concomitant]
  6. AMLODIPINE BESILATE [Concomitant]
  7. LEKOVIT CA (COLECALCIFEROL, CALCIUM CARBONATE) [Concomitant]
  8. FOLIC ACID [Concomitant]
  9. METHOTREXATE [Concomitant]

REACTIONS (3)
  - Malignant melanoma [None]
  - Skin lesion [None]
  - Haemorrhage [None]
